FAERS Safety Report 14228504 (Version 11)
Quarter: 2020Q1

REPORT INFORMATION
  Report Type: Report from Study
  Country: None (occurrence: NL)
  Receive Date: 20171128
  Receipt Date: 20200225
  Transmission Date: 20200409
  Serious: Yes (Other)
  Sender: FDA-Public Use
  Company Number: NL-ABBVIE-16K-114-1715586-00

PATIENT
  Age: 58 Year
  Sex: Male
  Weight: 80 kg

DRUGS (5)
  1. DUODOPA [Suspect]
     Active Substance: CARBIDOPA\LEVODOPA
     Indication: PARKINSON^S DISEASE
     Dosage: MD: 5.0, CD: 4.4, ED: 2.0, ND: 2.7
     Route: 050
     Dates: start: 20101103
  2. DUODOPA [Suspect]
     Active Substance: CARBIDOPA\LEVODOPA
     Dosage: CD 4.4ML 5-6AM 4.6ML 11AM; NIGHT DOSE 2.8 ML
     Route: 050
  3. MAGNESIUM [Concomitant]
     Active Substance: MAGNESIUM
     Indication: PRODUCT USED FOR UNKNOWN INDICATION
  4. DUODOPA [Suspect]
     Active Substance: CARBIDOPA\LEVODOPA
     Dosage: MD: 5.0 CD: 4.6ML  ED: 3.0 ML NIGHT DOSE: 3.8 ML
     Route: 050
  5. DUODOPA [Suspect]
     Active Substance: CARBIDOPA\LEVODOPA
     Dosage: MD: 5.0, CD: 4.5, ED: 3.0, CND: 3.5, END: 3.0
     Route: 050

REACTIONS (48)
  - Stress [Not Recovered/Not Resolved]
  - Tension [Not Recovered/Not Resolved]
  - Sluggishness [Not Recovered/Not Resolved]
  - Abnormal dreams [Recovered/Resolved]
  - Dystonia [Not Recovered/Not Resolved]
  - Stoma site discharge [Not Recovered/Not Resolved]
  - Peripheral coldness [Not Recovered/Not Resolved]
  - Gastrointestinal pain [Not Recovered/Not Resolved]
  - Fatigue [Recovered/Resolved]
  - Insomnia [Recovered/Resolved]
  - Stoma site erythema [Not Recovered/Not Resolved]
  - Malignant melanoma [Recovered/Resolved]
  - Malignant melanoma [Unknown]
  - Underdose [Recovered/Resolved]
  - Mobility decreased [Not Recovered/Not Resolved]
  - Gait disturbance [Recovered/Resolved]
  - Sleep disorder [Recovered/Resolved]
  - Stoma site discharge [Recovered/Resolved]
  - Stoma site irritation [Not Recovered/Not Resolved]
  - Stoma site reaction [Not Recovered/Not Resolved]
  - Stoma site haemorrhage [Not Recovered/Not Resolved]
  - On and off phenomenon [Not Recovered/Not Resolved]
  - Muscle rigidity [Not Recovered/Not Resolved]
  - Dyschezia [Not Recovered/Not Resolved]
  - Wound secretion [Recovered/Resolved]
  - Asthenia [Not Recovered/Not Resolved]
  - On and off phenomenon [Recovered/Resolved]
  - Stoma site discharge [Recovered/Resolved]
  - Inguinal hernia [Recovered/Resolved]
  - Food intolerance [Not Recovered/Not Resolved]
  - Gait disturbance [Not Recovered/Not Resolved]
  - Stoma site haemorrhage [Recovered/Resolved]
  - Malignant melanoma [Recovered/Resolved]
  - Loss of personal independence in daily activities [Not Recovered/Not Resolved]
  - Fatigue [Not Recovered/Not Resolved]
  - Hallucination [Recovered/Resolved]
  - Fibroma [Recovered/Resolved]
  - Myalgia [Not Recovered/Not Resolved]
  - General physical health deterioration [Not Recovered/Not Resolved]
  - Muscle spasms [Not Recovered/Not Resolved]
  - Memory impairment [Not Recovered/Not Resolved]
  - Limb discomfort [Not Recovered/Not Resolved]
  - Arthralgia [Not Recovered/Not Resolved]
  - Tremor [Not Recovered/Not Resolved]
  - Constipation [Recovered/Resolved]
  - Stoma site pruritus [Unknown]
  - Stoma site reaction [Recovered/Resolved]
  - Therapeutic product effect incomplete [Recovered/Resolved]

NARRATIVE: CASE EVENT DATE: 201612
